FAERS Safety Report 9645220 (Version 1)
Quarter: 2013Q4

REPORT INFORMATION
  Report Type: Spontaneous
  Country: US (occurrence: None)
  Receive Date: 20131023
  Receipt Date: 20131023
  Transmission Date: 20140711
  Serious: Yes (Other)
  Sender: FDA-Public Use
  Company Number: None

PATIENT
  Age: 55 Year
  Sex: Female

DRUGS (1)
  1. DILAUDID [Suspect]
     Indication: POSTOPERATIVE ANALGESIA
     Dosage: 64 TABS ORAL
     Route: 048
     Dates: start: 20130920, end: 20131006

REACTIONS (1)
  - Skin exfoliation [None]
